FAERS Safety Report 14969312 (Version 6)
Quarter: 2019Q2

REPORT INFORMATION
  Report Type: Report from Study
  Country: US (occurrence: US)
  Receive Date: 20180604
  Receipt Date: 20190611
  Transmission Date: 20190711
  Serious: Yes (Other)
  Sender: FDA-Public Use
  Company Number: US-AMGEN-USASL2018074271

PATIENT
  Age: 75 Year
  Sex: Female

DRUGS (3)
  1. REPATHA [Suspect]
     Active Substance: EVOLOCUMAB
     Indication: LIPIDS ABNORMAL
     Dosage: 140 MILLIGRAM, Q2WK
     Route: 065
  2. REPATHA [Suspect]
     Active Substance: EVOLOCUMAB
     Indication: HYPERCHOLESTEROLAEMIA
     Dosage: 280 MG (140 MGX2), Q2WK
     Route: 065
     Dates: start: 201805
  3. REPATHA [Suspect]
     Active Substance: EVOLOCUMAB
     Indication: CARDIOVASCULAR DISORDER
     Dosage: 140 MG, Q2WK
     Route: 065
     Dates: start: 201807

REACTIONS (12)
  - Wrong technique in product usage process [Unknown]
  - Accidental overdose [Unknown]
  - Therapy non-responder [Unknown]
  - Head injury [Unknown]
  - Atrial fibrillation [Unknown]
  - Asthenia [Unknown]
  - Device failure [Unknown]
  - Memory impairment [Unknown]
  - Road traffic accident [Unknown]
  - Injection site haemorrhage [Unknown]
  - Sluggishness [Unknown]
  - Fall [Unknown]

NARRATIVE: CASE EVENT DATE: 2018
